FAERS Safety Report 8293879-7 (Version None)
Quarter: 2012Q2

REPORT INFORMATION
  Report Type: 
  Country: None (occurrence: None)
  Receive Date: 20120418
  Receipt Date: 20120410
  Transmission Date: 20120825
  Serious: No
  Sender: FDA-Public Use
  Company Number: US-PFIZER INC-2012090087

PATIENT
  Sex: Male

DRUGS (6)
  1. LOSARTAN POTASSIUM [Suspect]
     Indication: HYPERTENSION
     Dosage: UNK
     Dates: start: 20120227
  2. SUTENT [Suspect]
     Dosage: 50 MG, UNK
     Dates: start: 20120201
  3. ACETAMINOPHEN AND HYDROCODONE BITARTRATE [Suspect]
     Dosage: UNK
  4. LASIX [Suspect]
     Indication: CHRONIC OBSTRUCTIVE PULMONARY DISEASE
     Dosage: 20 MG, 2X/DAY
  5. CALCIUM [Concomitant]
     Dosage: UNK
  6. VITAMIN D [Concomitant]
     Dosage: 50000 IU, UNK

REACTIONS (11)
  - SKIN FISSURES [None]
  - PAIN IN EXTREMITY [None]
  - DECREASED APPETITE [None]
  - DYSGEUSIA [None]
  - SKIN EXFOLIATION [None]
  - HYPERTENSION [None]
  - HYPERKERATOSIS [None]
  - ORAL PAIN [None]
  - TENDERNESS [None]
  - DIZZINESS [None]
  - FATIGUE [None]
